FAERS Safety Report 9308592 (Version 1)
Quarter: 2013Q2

REPORT INFORMATION
  Report Type: Spontaneous
  Country: US (occurrence: US)
  Receive Date: 20130524
  Receipt Date: 20130524
  Transmission Date: 20140414
  Serious: Yes (Other)
  Sender: FDA-Public Use
  Company Number: US-ELI_LILLY_AND_COMPANY-US201209000944

PATIENT
  Age: 66 Year
  Sex: Female

DRUGS (2)
  1. FORTEO [Suspect]
     Indication: OSTEOPOROSIS
     Dosage: 20 UG, QD
     Dates: start: 20120831
  2. FORTEO [Suspect]
     Dosage: 20 UG, QD

REACTIONS (6)
  - Myocardial infarction [Unknown]
  - Palpitations [Unknown]
  - Dysgeusia [Unknown]
  - Rash [Not Recovered/Not Resolved]
  - Rash [Unknown]
  - Muscle spasms [Unknown]
